FAERS Safety Report 7579175-1 (Version None)
Quarter: 2011Q2

REPORT INFORMATION
  Report Type: 
  Country: None (occurrence: None)
  Receive Date: 20110628
  Receipt Date: 20100813
  Transmission Date: 20111010
  Serious: Yes (Other)
  Sender: FDA-Public Use
  Company Number: US-BAYER-201030290NA

PATIENT
  Sex: Male
  Weight: 74 kg

DRUGS (18)
  1. MAGNEVIST [Suspect]
     Indication: NUCLEAR MAGNETIC RESONANCE IMAGING
     Dosage: 20 ML, ONCE
     Route: 042
     Dates: start: 20030507, end: 20030507
  2. ACCUPRIL [Concomitant]
     Dosage: 40 MG, QD
  3. NIFEDIPINE [Concomitant]
  4. PHENYTOIN [Concomitant]
     Dosage: 100 MG, UNK
  5. EPOETIN NOS [Concomitant]
  6. OMNISCAN [Suspect]
     Indication: NUCLEAR MAGNETIC RESONANCE IMAGING BRAIN
     Dosage: 20 ML (DAILY DOSE), ONCE, INTRAVENOUS
     Route: 042
     Dates: start: 20020812, end: 20020812
  7. DIVALPROEX SODIUM [Concomitant]
  8. PROCARDIA XL [Concomitant]
     Dosage: 60 MG, QD
  9. MAGNEVIST [Suspect]
  10. HYDRALAZINE HCL [Concomitant]
  11. CLONIDINE [Concomitant]
     Dosage: 0.2 MG, UNK
  12. NIFEDIPINE [Concomitant]
     Dosage: 60 MG, UNK
  13. PHOSLO [Concomitant]
     Dosage: 667 MG, TID WITH MEALS
  14. COUMADIN [Concomitant]
     Dosage: 0.2 MG, QAM AND QPM
  15. NORVASC [Concomitant]
     Dosage: 10 MG, QD
  16. LABETALOL HCL [Concomitant]
     Dosage: 200 MG, BID
  17. MINOXIDIL [Concomitant]
     Dosage: 5 MG, BID
  18. SODIUM NITROPRUSSIDE [Concomitant]

REACTIONS (11)
  - DRY SKIN [None]
  - OEDEMA [None]
  - BONE PAIN [None]
  - PAIN [None]
  - MUSCULOSKELETAL PAIN [None]
  - NEPHROGENIC SYSTEMIC FIBROSIS [None]
  - ARTHRALGIA [None]
  - HYPOAESTHESIA [None]
  - HYPERKERATOSIS [None]
  - SKIN HYPERPIGMENTATION [None]
  - PAIN IN EXTREMITY [None]
